FAERS Safety Report 7524931-9 (Version None)
Quarter: 2011Q2

REPORT INFORMATION
  Report Type: 
  Country: None (occurrence: None)
  Receive Date: 20110606
  Receipt Date: 20110523
  Transmission Date: 20111010
  Serious: Yes (Other)
  Sender: FDA-Public Use
  Company Number: GR-ELI_LILLY_AND_COMPANY-GR201105007768

PATIENT
  Age: 50 Year
  Sex: Female

DRUGS (7)
  1. TOPIRAMATE [Concomitant]
     Dosage: 25 MG, QD
     Route: 048
     Dates: start: 20110509
  2. CYMBALTA [Suspect]
     Dosage: 60 MG, BID
     Route: 048
     Dates: start: 20110401, end: 20110508
  3. CYMBALTA [Suspect]
     Indication: DIABETIC NEUROPATHY
     Dosage: 60 MG, QD
     Route: 048
     Dates: start: 20110201, end: 20110401
  4. INSULIN [Concomitant]
  5. TOPIRAMATE [Concomitant]
     Indication: DIABETIC NEUROPATHY
     Dosage: 50 MG, BID
     Route: 048
     Dates: start: 20110401, end: 20110508
  6. CYMBALTA [Suspect]
     Dosage: 60 MG, QD
     Route: 048
     Dates: start: 20110509
  7. ANTIHYPERTENSIVES [Concomitant]

REACTIONS (1)
  - ASTHMA [None]
